FAERS Safety Report 9429182 (Version 1)
Quarter: 2013Q3

REPORT INFORMATION
  Report Type: Spontaneous
  Country: US (occurrence: US)
  Receive Date: 20130730
  Receipt Date: 20130730
  Transmission Date: 20140515
  Serious: No
  Sender: FDA-Public Use
  Company Number: US-JNJFOC-20130710613

PATIENT
  Sex: Male
  Weight: 88.45 kg

DRUGS (5)
  1. DURAGESIC [Suspect]
     Indication: PAIN
     Route: 062
     Dates: start: 201306
  2. PERCOCET [Concomitant]
     Indication: PAIN
     Route: 065
     Dates: start: 2001
  3. NEURONTIN [Concomitant]
     Indication: PAIN
     Route: 065
     Dates: start: 2001
  4. CELEBREX [Concomitant]
     Indication: PAIN
     Route: 065
     Dates: start: 1999
  5. FLEXERIL [Concomitant]
     Indication: PAIN
     Route: 065
     Dates: start: 2001

REACTIONS (2)
  - Wrong technique in drug usage process [Not Recovered/Not Resolved]
  - Product quality issue [Unknown]
